FAERS Safety Report 8305649-1 (Version None)
Quarter: 2012Q2

REPORT INFORMATION
  Report Type: 
  Country: None (occurrence: None)
  Receive Date: 20120423
  Receipt Date: 20120416
  Transmission Date: 20120825
  Serious: Yes (Other)
  Sender: FDA-Public Use
  Company Number: FR-PFIZER INC-2012098650

PATIENT
  Age: 38 Year
  Sex: Male

DRUGS (15)
  1. ACETAMINOPHEN [Concomitant]
     Dosage: 3 G, UNK
     Route: 048
     Dates: start: 20120215
  2. IMOVANE [Concomitant]
     Dosage: 3.75 MG, UNK
     Route: 048
  3. ALFUZOSIN HCL [Concomitant]
     Dosage: 10 MG, UNK
     Route: 048
     Dates: start: 20120223
  4. HEPTAMINOL [Concomitant]
     Dosage: 563.4 MG TO 751.2 MG
     Route: 048
  5. TRANXENE [Concomitant]
     Dosage: UNK
     Route: 048
     Dates: start: 20120224
  6. BACLOFEN [Concomitant]
     Dosage: 60 MG, UNK
     Route: 048
     Dates: start: 20120215
  7. FENOFIBRATE [Concomitant]
     Dosage: 268 MG, UNK
     Route: 048
     Dates: start: 20120215
  8. ZOLOFT [Concomitant]
     Dosage: 50 MG, UNK
     Route: 048
     Dates: start: 20120309
  9. COLTRAMYL [Concomitant]
     Dosage: 4 MG, UNK
     Route: 048
     Dates: start: 20120307, end: 20120317
  10. MIDODRINE HYDROCHLORIDE [Concomitant]
     Dosage: UNK
     Route: 048
  11. PANTOPRAZOLE [Suspect]
     Dosage: 20 MG, DAILY
     Route: 048
     Dates: start: 20120320, end: 20120321
  12. ERYTHROMYCIN [Concomitant]
     Dosage: 1500 MG, UNK
     Route: 048
  13. PANTOPRAZOLE [Suspect]
     Indication: OESOPHAGITIS ULCERATIVE
     Dosage: 40 MG, DAILY
     Route: 048
     Dates: start: 20120216, end: 20120319
  14. LOVENOX [Concomitant]
     Dosage: 4000 IU, UNK
     Route: 058
     Dates: start: 20120215
  15. NEURONTIN [Concomitant]
     Dosage: 2100 MG TO 3000 MG
     Route: 048

REACTIONS (1)
  - NEUTROPENIA [None]
